FAERS Safety Report 18335384 (Version 2)
Quarter: 2022Q4

REPORT INFORMATION
  Report Type: Spontaneous
  Country: DE (occurrence: DE)
  Receive Date: 20201001
  Receipt Date: 20221029
  Transmission Date: 20230113
  Serious: Yes (Hospitalization)
  Sender: FDA-Public Use
  Company Number: DE-ADRED-05262-01

PATIENT
  Age: 84 Year
  Sex: Male
  Weight: 68 kg

DRUGS (12)
  1. LEFLUNOMIDE [Suspect]
     Active Substance: LEFLUNOMIDE
     Indication: Product used for unknown indication
     Dosage: 10 MILLIGRAM DAILY; 1-0-0-0
     Route: 048
  2. ALLOPURINOL [Suspect]
     Active Substance: ALLOPURINOL
     Indication: Product used for unknown indication
     Dosage: 100 MILLIGRAM DAILY; 1-0-0-0
     Route: 048
  3. TORSEMIDE [Suspect]
     Active Substance: TORSEMIDE
     Indication: Product used for unknown indication
     Dosage: 2 DOSAGE FORMS DAILY; 10 MG, 2-0-0-0,
     Route: 048
  4. CANDESARTAN [Suspect]
     Active Substance: CANDESARTAN
     Indication: Product used for unknown indication
     Dosage: .5 DOSAGE FORMS DAILY; 16 MG, 0.5-0-0-0,
     Route: 048
  5. OLODATEROL HYDROCHLORIDE\TIOTROPIUM BROMIDE MONOHYDRATE [Concomitant]
     Active Substance: OLODATEROL HYDROCHLORIDE\TIOTROPIUM BROMIDE MONOHYDRATE
     Indication: Product used for unknown indication
     Dosage: 2 DOSAGE FORMS DAILY; 2.5|2.5 MCG, 2-0-0-0, STRENGTH : 2,5MIKROGRAMM/2,5MIKROGRAMM
     Route: 055
  6. SIMVASTATIN [Concomitant]
     Active Substance: SIMVASTATIN
     Indication: Product used for unknown indication
     Dosage: 20 MILLIGRAM DAILY; 0-0-1-0
     Route: 048
  7. APIXABAN [Concomitant]
     Active Substance: APIXABAN
     Indication: Product used for unknown indication
     Dosage: 5 MILLIGRAM DAILY; 1-0-1-0
     Route: 048
  8. ALBUTEROL [Concomitant]
     Active Substance: ALBUTEROL
     Indication: Product used for unknown indication
     Dosage: .1 MILLIGRAM DAILY; 1-0-0-0,
     Route: 055
  9. BUDESONIDE [Concomitant]
     Active Substance: BUDESONIDE
     Indication: Product used for unknown indication
     Dosage: .4 MILLIGRAM DAILY; 1-0-1-0
     Route: 055
  10. PANTOPRAZOLE SODIUM [Concomitant]
     Active Substance: PANTOPRAZOLE SODIUM
     Indication: Product used for unknown indication
     Dosage: 40 MILLIGRAM DAILY; 1-0-0-0
     Route: 048
  11. CHOLECALCIFEROL [Concomitant]
     Active Substance: CHOLECALCIFEROL
     Indication: Product used for unknown indication
     Dosage: 1000 IU (INTERNATIONAL UNIT) DAILY; 1-0-0-0
     Route: 048
  12. Inspiolto Respim [Concomitant]
     Indication: Product used for unknown indication
     Dosage: 2 DOSAGE FORMS DAILY; STRENGTH : 2,5MIKROGRAMM/2,5MIKROGRAMM , 2.5|2.5 UG,

REACTIONS (8)
  - General physical health deterioration [Recovering/Resolving]
  - Oedema peripheral [Recovering/Resolving]
  - Fatigue [Recovering/Resolving]
  - Dyspnoea [Recovering/Resolving]
  - Condition aggravated [Recovering/Resolving]
  - Electrolyte imbalance [Recovering/Resolving]
  - Cardiac failure [Recovering/Resolving]
  - Acute kidney injury [Recovering/Resolving]
